FAERS Safety Report 4451381-4 (Version None)
Quarter: 2004Q3

REPORT INFORMATION
  Report Type: 
  Country: None (occurrence: None)
  Receive Date: 20040916
  Receipt Date: 20040908
  Transmission Date: 20050211
  Serious: Yes (Death)
  Sender: FDA-Public Use
  Company Number: US-JNJFOC-20040707923

PATIENT
  Age: 54 Year
  Sex: Female

DRUGS (4)
  1. NATRECOR [Suspect]
     Route: 042
  2. LASIX [Suspect]
     Indication: DIURETIC THERAPY
     Route: 042
  3. BUMEX [Suspect]
     Indication: DIURETIC THERAPY
  4. MULTIPLE MEDICATIONS [Concomitant]

REACTIONS (4)
  - DRUG INTERACTION [None]
  - HYPOKALAEMIA [None]
  - HYPOTENSION [None]
  - MULTI-ORGAN FAILURE [None]
